FAERS Safety Report 4262310-0 (Version None)
Quarter: 2004Q1

REPORT INFORMATION
  Report Type: 
  Country: None (occurrence: None)
  Receive Date: 20040102
  Receipt Date: 20031222
  Transmission Date: 20041129
  Serious: Yes (Hospitalization)
  Sender: FDA-Public Use
  Company Number: PHBS2003JP14452

PATIENT
  Age: 74 Year
  Sex: Male

DRUGS (5)
  1. LAMISIL [Suspect]
     Indication: BODY TINEA
     Dosage: 125 MG/D
     Route: 048
     Dates: start: 20031125, end: 20031208
  2. EBASTEL [Concomitant]
     Route: 047
  3. SIGMART [Concomitant]
     Route: 048
  4. MYONAL [Concomitant]
     Route: 048
  5. ALESION [Concomitant]
     Route: 048

REACTIONS (3)
  - EPILEPSY [None]
  - NERVOUS SYSTEM DISORDER [None]
  - RESTLESSNESS [None]
